FAERS Safety Report 8553301-X (Version None)
Quarter: 2012Q3

REPORT INFORMATION
  Report Type: 
  Country: None (occurrence: None)
  Receive Date: 20120731
  Receipt Date: 20120726
  Transmission Date: 20120928
  Serious: Yes (Other)
  Sender: FDA-Public Use
  Company Number: US-TEVA-326090USA

PATIENT
  Age: 16 Year
  Sex: Female

DRUGS (1)
  1. LAMOTRIGINE [Suspect]
     Indication: BIPOLAR DISORDER
     Dosage: ON MEDICAITON FOR ABOUT 3 YEARS

REACTIONS (7)
  - CONVERSION DISORDER [None]
  - MUSCLE SPASMS [None]
  - NAUSEA [None]
  - MULTIPLE SCLEROSIS [None]
  - INCONTINENCE [None]
  - CONVULSION [None]
  - OPTIC NEURITIS [None]
